FAERS Safety Report 9268825 (Version 1)
Quarter: 2013Q2

REPORT INFORMATION
  Report Type: Spontaneous
  Country: US (occurrence: US)
  Receive Date: 20130502
  Receipt Date: 20130502
  Transmission Date: 20140414
  Serious: No
  Sender: FDA-Public Use
  Company Number: US-ASTRAZENECA-2013SE24081

PATIENT
  Sex: Male

DRUGS (1)
  1. PRILOSEC [Suspect]
     Indication: HIATUS HERNIA
     Route: 048

REACTIONS (9)
  - Palpitations [Recovered/Resolved]
  - Asthenia [Unknown]
  - Fatigue [Unknown]
  - Fatigue [Unknown]
  - Feeling abnormal [Unknown]
  - Vitamin B12 deficiency [Unknown]
  - Pain [Unknown]
  - Vomiting [Unknown]
  - Off label use [Unknown]
